FAERS Safety Report 10972045 (Version 1)
Quarter: 2015Q1

REPORT INFORMATION
  Report Type: Spontaneous
  Country: US (occurrence: US)
  Receive Date: 20150331
  Receipt Date: 20150331
  Transmission Date: 20150721
  Serious: No
  Sender: FDA-Public Use
  Company Number: US-GLAXOSMITHKLINE-US2015042125

PATIENT
  Sex: Female

DRUGS (2)
  1. BUPROPION HYDROCHLORIDE MODIFIED-RELEASE TABLET [Suspect]
     Active Substance: BUPROPION HYDROCHLORIDE
     Dosage: 300 MG, QD
     Route: 048
  2. BUPROPION HYDROCHLORIDE MODIFIED-RELEASE TABLET [Suspect]
     Active Substance: BUPROPION HYDROCHLORIDE
     Indication: DEPRESSION
     Dosage: 100 MG, 1D
     Route: 048

REACTIONS (5)
  - Rash [Recovered/Resolved]
  - Depression [Recovered/Resolved]
  - Drug ineffective [Recovered/Resolved]
  - Anxiety [Recovered/Resolved]
  - Psychomotor hyperactivity [Recovered/Resolved]

NARRATIVE: CASE EVENT DATE: 2013
